FAERS Safety Report 6340267-6 (Version None)
Quarter: 2009Q3

REPORT INFORMATION
  Report Type: 
  Country: None (occurrence: None)
  Receive Date: 20090902
  Receipt Date: 20090821
  Transmission Date: 20100115
  Serious: Yes (Other)
  Sender: FDA-Public Use
  Company Number: ADR17442009

PATIENT
  Age: 82 Year
  Sex: Female

DRUGS (3)
  1. SERTRALINE HCL [Suspect]
     Dosage: ORAL
     Route: 048
     Dates: start: 20090714
  2. ADCAL-D3 [Concomitant]
  3. ALENDRONIC ACID [Concomitant]

REACTIONS (4)
  - DIARRHOEA [None]
  - HAIR GROWTH ABNORMAL [None]
  - NAUSEA [None]
  - THERAPEUTIC RESPONSE UNEXPECTED [None]
